FAERS Safety Report 17884089 (Version 1)
Quarter: 2020Q2

REPORT INFORMATION
  Report Type: Spontaneous
  Country: US (occurrence: US)
  Receive Date: 20200610
  Receipt Date: 20200610
  Transmission Date: 20200714
  Serious: No
  Sender: FDA-Public Use
  Company Number: None

PATIENT
  Age: 60 Year
  Sex: Female

DRUGS (4)
  1. NP THYROID [Suspect]
     Active Substance: LEVOTHYROXINE\LIOTHYRONINE
     Indication: HYPOTHYROIDISM
     Route: 048
     Dates: start: 20200406, end: 20200610
  2. VITAMIN D [Concomitant]
     Active Substance: VITAMIN D NOS
  3. ELDERBERRY [Concomitant]
     Active Substance: HERBALS
  4. VITAMIN C [Concomitant]
     Active Substance: ASCORBIC ACID

REACTIONS (5)
  - Trichorrhexis [None]
  - Dry skin [None]
  - Fatigue [None]
  - Urticaria [None]
  - Vision blurred [None]

NARRATIVE: CASE EVENT DATE: 20200406
